FAERS Safety Report 4370107-6 (Version None)
Quarter: 2004Q2

REPORT INFORMATION
  Report Type: 
  Country: None (occurrence: None)
  Receive Date: 20040527
  Receipt Date: 20040507
  Transmission Date: 20050107
  Serious: Yes (Hospitalization, Other)
  Sender: FDA-Public Use
  Company Number: CA_040406841

PATIENT
  Age: 54 Year
  Sex: Female

DRUGS (4)
  1. GEMZAR [Suspect]
     Indication: OVARIAN CANCER
     Dosage: 1539 MG/M2 OTHER
     Dates: start: 20030625
  2. THYROXINE [Concomitant]
  3. LASIX [Concomitant]
  4. PROCHLORPERAZINE [Concomitant]

REACTIONS (11)
  - ALANINE AMINOTRANSFERASE INCREASED [None]
  - ASPARTATE AMINOTRANSFERASE INCREASED [None]
  - BILE DUCT STENOSIS [None]
  - BLINDNESS TRANSIENT [None]
  - BLOOD ALKALINE PHOSPHATASE INCREASED [None]
  - BLOOD CHLORIDE DECREASED [None]
  - BLOOD LACTATE DEHYDROGENASE INCREASED [None]
  - BLOOD SODIUM DECREASED [None]
  - GRAND MAL CONVULSION [None]
  - JAUNDICE [None]
  - POSTICTAL STATE [None]
